FAERS Safety Report 8881778 (Version 5)
Quarter: 2013Q4

REPORT INFORMATION
  Report Type: Spontaneous
  Country: JP (occurrence: JP)
  Receive Date: 20121105
  Receipt Date: 20131029
  Transmission Date: 20140711
  Serious: Yes (Life-Threatening, Hospitalization)
  Sender: FDA-Public Use
  Company Number: JP-JNJFOC-20121016972

PATIENT
  Age: 71 Year
  Sex: Female
  Weight: 49 kg

DRUGS (9)
  1. REMICADE [Suspect]
     Indication: RHEUMATOID ARTHRITIS
     Route: 042
     Dates: start: 20120830
  2. REMICADE [Suspect]
     Indication: RHEUMATOID ARTHRITIS
     Route: 042
     Dates: start: 20120802
  3. REMICADE [Suspect]
     Indication: RHEUMATOID ARTHRITIS
     Route: 042
     Dates: start: 20120718
  4. RHEUMATREX [Suspect]
     Indication: RHEUMATOID ARTHRITIS
     Route: 048
     Dates: end: 20120929
  5. FOLIAMIN [Concomitant]
     Indication: PROPHYLAXIS
     Dosage: 5MG/W
     Route: 048
     Dates: end: 20120929
  6. LOXONIN [Concomitant]
     Indication: RHEUMATOID ARTHRITIS
     Dosage: ROUTE OF ADMINISTRATION: OD
     Route: 048
     Dates: end: 20120929
  7. LOXONIN [Concomitant]
     Indication: RHEUMATOID ARTHRITIS
     Dosage: PER ORAL ADMINISTRATON
     Route: 048
     Dates: end: 20120929
  8. TAKEPRON [Concomitant]
     Indication: PROPHYLAXIS
     Route: 048
     Dates: end: 20120929
  9. VOLTAREN [Concomitant]
     Indication: RHEUMATOID ARTHRITIS
     Route: 054
     Dates: end: 20120929

REACTIONS (6)
  - Pulmonary tuberculosis [Recovered/Resolved]
  - Dehydration [Not Recovered/Not Resolved]
  - Disseminated tuberculosis [Recovering/Resolving]
  - Respiratory failure [Unknown]
  - Joint tuberculosis [Unknown]
  - Adverse event [Unknown]
